FAERS Safety Report 4807308-6 (Version None)
Quarter: 2005Q4

REPORT INFORMATION
  Report Type: 
  Country: None (occurrence: None)
  Receive Date: 20051020
  Receipt Date: 20051020
  Transmission Date: 20060501
  Serious: Yes (Hospitalization)
  Sender: FDA-Public Use
  Company Number: None

PATIENT
  Age: 63 Year
  Sex: Male

DRUGS (11)
  1. WARFARIN [Suspect]
     Indication: DEEP VEIN THROMBOSIS
     Dosage: 5 MG QD
  2. OXYCODONE AND ACETAMINOPHEN [Concomitant]
  3. FELODIPINE [Concomitant]
  4. HYDROCHLOROTHIAZIDE [Concomitant]
  5. METOPROLOL [Concomitant]
  6. OMEPRAZOLE [Concomitant]
  7. POTASSIUM CHLORIDE [Concomitant]
  8. CITALOPRAM [Concomitant]
  9. TERAZOSIN HCL [Concomitant]
  10. CLONIDINE [Concomitant]
  11. TIZANIDINE HCL [Concomitant]

REACTIONS (4)
  - DISEASE RECURRENCE [None]
  - FATIGUE [None]
  - MELAENA [None]
  - ULCER [None]
